FAERS Safety Report 14270123 (Version 2)
Quarter: 2018Q3

REPORT INFORMATION
  Report Type: Spontaneous
  Country: IT (occurrence: IT)
  Receive Date: 20171211
  Receipt Date: 20180711
  Transmission Date: 20181010
  Serious: Yes (Other)
  Sender: FDA-Public Use
  Company Number: IT-OTSUKA-2017_022126

PATIENT
  Age: 20 Year
  Sex: Female

DRUGS (6)
  1. TAVOR (LORAZEPAM) [Suspect]
     Active Substance: LORAZEPAM
     Indication: DEPRESSION
     Dosage: 1 DF, TOTAL
     Route: 048
     Dates: start: 20170813, end: 20170813
  2. ZOLOFT [Suspect]
     Active Substance: SERTRALINE HYDROCHLORIDE
     Indication: DEPRESSION
     Dosage: 1 DF, TOTAL (1 DF= 1 DOSAGE UNIT)
     Route: 048
     Dates: start: 20170813, end: 20170813
  3. XANAX [Suspect]
     Active Substance: ALPRAZOLAM
     Indication: DEPRESSION
     Dosage: 2 DF, TOTAL
     Route: 048
     Dates: start: 20170813, end: 20170813
  4. DEPAKIN [Suspect]
     Active Substance: VALPROATE SODIUM
     Indication: BIPOLAR DISORDER
     Dosage: 3 DF, TOTAL
     Route: 048
     Dates: start: 20170813, end: 20170813
  5. TRITTICO [Suspect]
     Active Substance: TRAZODONE HYDROCHLORIDE
     Indication: DEPRESSION
     Dosage: 2 DF, TOTAL
     Route: 048
     Dates: start: 20170813, end: 20170813
  6. ABILIFY [Suspect]
     Active Substance: ARIPIPRAZOLE
     Indication: BIPOLAR DISORDER
     Dosage: 2 DF, TOTAL
     Route: 048
     Dates: start: 20170813, end: 20170813

REACTIONS (1)
  - Drug abuse [Unknown]

NARRATIVE: CASE EVENT DATE: 20170813
